FAERS Safety Report 22029995 (Version 1)
Quarter: 2023Q1

REPORT INFORMATION
  Report Type: Spontaneous
  Country: US (occurrence: US)
  Receive Date: 20230223
  Receipt Date: 20230223
  Transmission Date: 20230418
  Serious: Yes (Life-Threatening)
  Sender: FDA-Public Use
  Company Number: US-LANTHEUS-LMI-2022-01332

PATIENT
  Age: 66 Year
  Sex: Male
  Weight: 108 kg

DRUGS (1)
  1. DEFINITY RT [Suspect]
     Active Substance: PERFLUTREN
     Indication: Product used for unknown indication
     Dosage: 1 MILLILITRE (0.35 ML DEFINITY PREPARED IN 8.7 ML NORMAL SALINE)
     Route: 042
     Dates: start: 20221102, end: 20221102

REACTIONS (3)
  - Respiratory arrest [Recovered/Resolved with Sequelae]
  - Eye movement disorder [Recovered/Resolved with Sequelae]
  - Chest discomfort [Recovered/Resolved with Sequelae]

NARRATIVE: CASE EVENT DATE: 20221102
